FAERS Safety Report 14377362 (Version 2)
Quarter: 2018Q1

REPORT INFORMATION
  Report Type: Report from Study
  Country: US (occurrence: US)
  Receive Date: 20180111
  Receipt Date: 20180119
  Transmission Date: 20180509
  Serious: Yes (Hospitalization)
  Sender: FDA-Public Use
  Company Number: US-UCBSA-2018001056

PATIENT
  Age: 26 Year
  Sex: Female

DRUGS (2)
  1. VIMPAT [Suspect]
     Active Substance: LACOSAMIDE
     Indication: PRODUCT USED FOR UNKNOWN INDICATION
     Dosage: UNK
  2. LEVETIRACETAM. [Suspect]
     Active Substance: LEVETIRACETAM
     Indication: PRODUCT USED FOR UNKNOWN INDICATION
     Dosage: UNK

REACTIONS (8)
  - Drug ineffective [Unknown]
  - Disturbance in attention [Unknown]
  - Seizure [Unknown]
  - Irritability [Unknown]
  - Memory impairment [Unknown]
  - Hypersomnia [Unknown]
  - Fatigue [Unknown]
  - Frustration tolerance decreased [Unknown]
